FAERS Safety Report 16019213 (Version 1)
Quarter: 2019Q1

REPORT INFORMATION
  Report Type: Spontaneous
  Country: US (occurrence: US)
  Receive Date: 20190228
  Receipt Date: 20190228
  Transmission Date: 20190418
  Serious: No
  Sender: FDA-Public Use
  Company Number: US-BAYER-2019-036879

PATIENT
  Age: 78 Year
  Sex: Male

DRUGS (2)
  1. TINACTIN SUPER ABSORBENT [Suspect]
     Active Substance: TOLNAFTATE
     Indication: THERAPEUTIC SKIN CARE TOPICAL
     Dosage: UNK
     Route: 061
  2. LOTRIMIN ULTRA ANTIFUNGAL [Suspect]
     Active Substance: BUTENAFINE HYDROCHLORIDE
     Indication: THERAPEUTIC SKIN CARE TOPICAL
     Dosage: UNK
     Route: 061

REACTIONS (4)
  - Asthenopia [Unknown]
  - Erythema [Unknown]
  - Pain in extremity [Unknown]
  - Skin fissures [Unknown]
